FAERS Safety Report 5236713-1 (Version None)
Quarter: 2007Q1

REPORT INFORMATION
  Report Type: 
  Country: None (occurrence: None)
  Receive Date: 20070213
  Receipt Date: 20070129
  Transmission Date: 20070707
  Serious: Yes (Hospitalization, Other)
  Sender: FDA-Public Use
  Company Number: PHBS2005IT10444

PATIENT
  Age: 56 Year
  Sex: Female

DRUGS (16)
  1. ARIMIDEX [Concomitant]
     Indication: METASTASES TO BONE
     Dosage: 1 DF, QD
     Dates: start: 20010406
  2. FLUOROURACIL [Concomitant]
     Indication: METASTASES TO BONE
     Dosage: 250 MG/M2/DAY
     Dates: end: 20030203
  3. VINORELBINE [Concomitant]
     Indication: METASTASES TO BONE
     Dosage: UNK, UNK
     Dates: end: 20030203
  4. TAXOL [Concomitant]
     Indication: METASTASES TO BONE
     Dosage: 175 MG/M2
     Dates: start: 20030201, end: 20030703
  5. TAXOL [Concomitant]
     Dosage: 175 MG/M2
     Dates: start: 20040701, end: 20050701
  6. CARBOPLATIN [Concomitant]
     Indication: METASTASES TO BONE
     Dosage: 6 AUC
     Dates: start: 20040701, end: 20050701
  7. SEROPRAM [Concomitant]
     Dosage: 10 DROPS/DAY
  8. NIMESULIDE [Concomitant]
     Dosage: 100 MG, PRN
  9. CHEMOTHERAPEUTICS,OTHER [Concomitant]
     Indication: METASTASES TO BONE
     Route: 065
  10. FENTANYL CITRATE [Concomitant]
     Indication: PAIN
     Dosage: 25 MICROGRAM/HOUR
     Route: 062
  11. HERCEPTIN [Concomitant]
     Indication: METASTASES TO BONE
     Route: 065
  12. HERCEPTIN [Concomitant]
     Dosage: 2 MG/W
     Dates: start: 20030201, end: 20030703
  13. HERCEPTIN [Concomitant]
     Dates: start: 20030801
  14. HERCEPTIN [Concomitant]
     Dosage: UNK, QW
  15. DELTACORTENE [Concomitant]
     Indication: METASTASES TO BONE
     Dosage: 25 MG/D
     Route: 048
  16. AREDIA [Suspect]
     Indication: METASTASES TO BONE
     Dosage: 90 MG, QMO
     Route: 042
     Dates: start: 20010604

REACTIONS (16)
  - ACTINOMYCOSIS [None]
  - BONE DENSITY DECREASED [None]
  - BONE FISTULA [None]
  - BONE PAIN [None]
  - DEEP VEIN THROMBOSIS [None]
  - DISEASE PROGRESSION [None]
  - GASTROOESOPHAGEAL REFLUX DISEASE [None]
  - GINGIVAL INFECTION [None]
  - OSTEOLYSIS [None]
  - OSTEOMYELITIS [None]
  - OSTEONECROSIS [None]
  - PULMONARY EMBOLISM [None]
  - SURGERY [None]
  - TOOTH AVULSION [None]
  - TOOTHACHE [None]
  - UNWANTED AWARENESS DURING ANAESTHESIA [None]
